FAERS Safety Report 7283551-4 (Version None)
Quarter: 2011Q1

REPORT INFORMATION
  Report Type: 
  Country: None (occurrence: None)
  Receive Date: 20110209
  Receipt Date: 20110204
  Transmission Date: 20110831
  Serious: Yes (Hospitalization)
  Sender: FDA-Public Use
  Company Number: A0757508A

PATIENT
  Age: 37 Year
  Sex: Male
  Weight: 56.8 kg

DRUGS (2)
  1. AVANDIA [Suspect]
     Dosage: 4MG PER DAY
     Route: 048
     Dates: start: 20041001, end: 20070301
  2. AVANDAMET [Suspect]
     Dosage: 4MG PER DAY
     Route: 048

REACTIONS (4)
  - MYOCARDIAL INFARCTION [None]
  - INJURY [None]
  - CARDIAC DISORDER [None]
  - SYNCOPE [None]
